FAERS Safety Report 16090542 (Version 3)
Quarter: 2019Q2

REPORT INFORMATION
  Report Type: Spontaneous
  Country: BR (occurrence: BR)
  Receive Date: 20190319
  Receipt Date: 20190515
  Transmission Date: 20190711
  Serious: Yes (Other)
  Sender: FDA-Public Use
  Company Number: BR-PFIZER INC-2019117756

PATIENT
  Age: 70 Year
  Sex: Male

DRUGS (1)
  1. FELDENE [Suspect]
     Active Substance: PIROXICAM

REACTIONS (2)
  - Abdominal discomfort [Unknown]
  - Gastritis erosive [Unknown]

NARRATIVE: CASE EVENT DATE: 2009
